FAERS Safety Report 6520700-7 (Version None)
Quarter: 2009Q4

REPORT INFORMATION
  Report Type: 
  Country: None (occurrence: None)
  Receive Date: 20091229
  Receipt Date: 20091216
  Transmission Date: 20100525
  Serious: Yes (Hospitalization)
  Sender: FDA-Public Use
  Company Number: US-WATSON-2009-10873

PATIENT
  Age: 61 Year
  Sex: Male

DRUGS (4)
  1. CIPROFLOXACIN HCL [Suspect]
     Indication: DRUG USE FOR UNKNOWN INDICATION
     Dosage: UNK
     Route: 065
  2. METHADONE [Suspect]
     Indication: BACK PAIN
     Dosage: UNK
     Route: 065
  3. VENLAFAXINE [Suspect]
     Indication: MAJOR DEPRESSION
     Dosage: 100 MG, BID
     Route: 065
  4. VENLAFAXINE [Suspect]
     Dosage: 75 MG, BID

REACTIONS (2)
  - DRUG INTERACTION [None]
  - SEROTONIN SYNDROME [None]
